FAERS Safety Report 9969899 (Version 1)
Quarter: 2014Q1

REPORT INFORMATION
  Report Type: Spontaneous
  Country: FR (occurrence: None)
  Receive Date: 20140304
  Receipt Date: 20140304
  Transmission Date: 20141002
  Serious: Yes (Other)
  Sender: FDA-Public Use
  Company Number: HRA-CDB20140024

PATIENT
  Age: 34 Year
  Sex: Female

DRUGS (1)
  1. ELLAONE 30 MG COMPRIME` (ELLAONE) (ULIPRISTL ACETATE) [Suspect]
     Indication: POST COITAL CONTRACEPTION
     Dosage: (30 MG, 1 IN 1 D)
     Route: 048
     Dates: start: 20140106, end: 20140106

REACTIONS (3)
  - No therapeutic response [None]
  - Abortion spontaneous [None]
  - Pregnancy on oral contraceptive [None]
